FAERS Safety Report 9747200 (Version 1)
Quarter: 2013Q4

REPORT INFORMATION
  Report Type: Report from Study
  Country: US (occurrence: US)
  Receive Date: 20131212
  Receipt Date: 20131212
  Transmission Date: 20140711
  Serious: Yes (Death)
  Sender: FDA-Public Use
  Company Number: US-ROCHE-1317321

PATIENT
  Sex: Male

DRUGS (7)
  1. AVASTIN [Suspect]
     Indication: PRODUCT USED FOR UNKNOWN INDICATION
     Route: 065
  2. ALOXI [Concomitant]
     Dosage: 0.25MG
     Route: 042
     Dates: start: 20111202, end: 20111202
  3. DECADRON [Concomitant]
     Route: 042
     Dates: start: 20111202, end: 20111202
  4. BENADRYL (UNITED STATES) [Concomitant]
     Route: 042
     Dates: start: 20111202, end: 20111202
  5. SOLU-MEDROL [Concomitant]
     Dosage: 125MG
     Route: 040
     Dates: start: 20111202, end: 20111202
  6. ALIMTA [Concomitant]
     Dosage: 1060MG
     Route: 065
     Dates: start: 20111202, end: 20111202
  7. CARBOPLATIN [Concomitant]
     Dosage: 750MG
     Route: 065
     Dates: start: 20111202, end: 20111202

REACTIONS (3)
  - Death [Fatal]
  - Pruritus [Unknown]
  - Rash erythematous [Unknown]
